FAERS Safety Report 14539750 (Version 1)
Quarter: 2018Q1

REPORT INFORMATION
  Report Type: Spontaneous
  Country: SE (occurrence: SE)
  Receive Date: 20180216
  Receipt Date: 20180216
  Transmission Date: 20180509
  Serious: Yes (Other)
  Sender: FDA-Public Use
  Company Number: PHHY2018SE013911

PATIENT
  Sex: Female

DRUGS (2)
  1. ESTRADOT [Suspect]
     Active Substance: ESTRADIOL
     Indication: FLUSHING
     Dosage: 100 UG, UNK
     Route: 062
  2. ESTRADOT [Suspect]
     Active Substance: ESTRADIOL
     Dosage: 25 UG, QD
     Route: 062

REACTIONS (2)
  - Flushing [Unknown]
  - Uterine cancer [Unknown]
